FAERS Safety Report 14151174 (Version 4)
Quarter: 2017Q4

REPORT INFORMATION
  Report Type: Spontaneous
  Country: US (occurrence: US)
  Receive Date: 20171102
  Receipt Date: 20171124
  Transmission Date: 20180321
  Serious: Yes (Hospitalization)
  Sender: FDA-Public Use
  Company Number: US-UNITED THERAPEUTICS-UNT-2017-014031

PATIENT
  Age: 53 Year
  Sex: Female

DRUGS (11)
  1. ORENITRAM [Suspect]
     Active Substance: TREPROSTINIL
     Dosage: 1 MG, TID
     Route: 048
     Dates: start: 20170905
  2. AMBRISENTAN [Suspect]
     Active Substance: AMBRISENTAN
     Indication: PULMONARY ARTERIAL HYPERTENSION
     Dosage: 5 MG, QD
     Route: 065
     Dates: start: 20150827
  3. OXYGEN. [Concomitant]
     Active Substance: OXYGEN
     Indication: PRODUCT USED FOR UNKNOWN INDICATION
     Dosage: UNK
     Route: 065
  4. ORENITRAM [Suspect]
     Active Substance: TREPROSTINIL
     Dosage: 2.125 MG, TID
     Route: 048
     Dates: start: 20170905
  5. ORENITRAM [Suspect]
     Active Substance: TREPROSTINIL
     Dosage: 1.625 MG, TID
     Route: 048
     Dates: start: 20171018
  6. ORENITRAM [Suspect]
     Active Substance: TREPROSTINIL
     Dosage: 1.75 MG, TID
     Route: 048
     Dates: start: 20171020
  7. ORENITRAM [Suspect]
     Active Substance: TREPROSTINIL
     Dosage: 2.375 MG, TID
     Route: 048
     Dates: start: 20170908
  8. ORENITRAM [Suspect]
     Active Substance: TREPROSTINIL
     Dosage: 0.25 MG, TID
     Route: 048
     Dates: start: 20170905
  9. ORENITRAM [Suspect]
     Active Substance: TREPROSTINIL
     Dosage: 1.875 MG, TID
     Route: 048
     Dates: start: 20170908
  10. ORENITRAM [Suspect]
     Active Substance: TREPROSTINIL
     Indication: PULMONARY ARTERIAL HYPERTENSION
     Dosage: 0.75 MG, TID
     Route: 048
     Dates: start: 20170905
  11. ORENITRAM [Suspect]
     Active Substance: TREPROSTINIL
     Dosage: 0.125 MG, TID
     Route: 048

REACTIONS (10)
  - Nasopharyngitis [Unknown]
  - Dyspnoea [Not Recovered/Not Resolved]
  - Swelling [Not Recovered/Not Resolved]
  - Chest discomfort [Unknown]
  - Abdominal pain upper [Not Recovered/Not Resolved]
  - Dysphagia [Not Recovered/Not Resolved]
  - Headache [Not Recovered/Not Resolved]
  - Dizziness [Unknown]
  - Pneumonia [Not Recovered/Not Resolved]
  - Chest pain [Recovered/Resolved]

NARRATIVE: CASE EVENT DATE: 2017
